FAERS Safety Report 24547898 (Version 1)
Quarter: 2024Q4

REPORT INFORMATION
  Report Type: Spontaneous
  Country: US (occurrence: US)
  Receive Date: 20241025
  Receipt Date: 20241025
  Transmission Date: 20250115
  Serious: Yes (Other)
  Sender: ENDO
  Company Number: US-ENDO USA, INC.-2024-050228

PATIENT
  Age: 16 Year
  Sex: Female

DRUGS (2)
  1. BUPROPION HYDROCHLORIDE [Suspect]
     Active Substance: BUPROPION HYDROCHLORIDE
     Indication: Product used for unknown indication
     Dosage: UNK UNKNOWN, UNKNOWN (SUBSTANTIAL QUANTITY, TOTALING 9-12 G (30-40 TABLETS))
     Route: 048
  2. ALCOHOL [Suspect]
     Active Substance: ALCOHOL
     Indication: Product used for unknown indication
     Dosage: UNK UNKNOWN, UNKNOWN (8-9 ALCOHOLIC BEVERAGES)
     Route: 048

REACTIONS (6)
  - Haemodynamic instability [Recovered/Resolved]
  - Areflexia [Recovered/Resolved]
  - Partial seizures [Recovered/Resolved]
  - Mental status changes [Recovered/Resolved]
  - Electrocardiogram QT prolonged [Recovered/Resolved]
  - Intentional overdose [Recovered/Resolved]
